FAERS Safety Report 16349211 (Version 1)
Quarter: 2019Q2

REPORT INFORMATION
  Report Type: Spontaneous
  Country: FR (occurrence: FR)
  Receive Date: 20190523
  Receipt Date: 20190523
  Transmission Date: 20190711
  Serious: Yes (Other)
  Sender: FDA-Public Use
  Company Number: FR-ABBVIE-19K-056-2786446-00

PATIENT
  Age: 66 Year
  Sex: Male

DRUGS (5)
  1. IBRUTINIB [Suspect]
     Active Substance: IBRUTINIB
     Indication: CHRONIC LYMPHOCYTIC LEUKAEMIA
     Route: 065
  2. VENCLYXTO [Suspect]
     Active Substance: VENETOCLAX
     Dosage: WEEK 3
     Route: 048
     Dates: start: 2018
  3. ACICLOVIR [Concomitant]
     Active Substance: ACYCLOVIR
     Indication: PRODUCT USED FOR UNKNOWN INDICATION
  4. VENCLYXTO [Suspect]
     Active Substance: VENETOCLAX
     Indication: CHRONIC LYMPHOCYTIC LEUKAEMIA
     Dosage: WEEK 1
     Route: 048
     Dates: start: 201807, end: 2018
  5. VENCLYXTO [Suspect]
     Active Substance: VENETOCLAX
     Dosage: WEEK 2
     Route: 048
     Dates: start: 2018, end: 2018

REACTIONS (3)
  - Off label use [Unknown]
  - Aspergillus infection [Recovering/Resolving]
  - General physical condition abnormal [Recovering/Resolving]

NARRATIVE: CASE EVENT DATE: 2018
